FAERS Safety Report 20181946 (Version 4)
Quarter: 2022Q1

REPORT INFORMATION
  Report Type: Spontaneous
  Country: JP (occurrence: JP)
  Receive Date: 20211214
  Receipt Date: 20220201
  Transmission Date: 20220423
  Serious: Yes (Hospitalization)
  Sender: FDA-Public Use
  Company Number: JP-GLAXOSMITHKLINE-JP2021GSK249001

PATIENT
  Age: 50 Year
  Sex: Female

DRUGS (4)
  1. SUMATRIPTAN SUCCINATE [Suspect]
     Active Substance: SUMATRIPTAN SUCCINATE
     Indication: Migraine
     Dosage: 50 MG, 1D
     Route: 048
  2. SUMATRIPTAN SUCCINATE [Suspect]
     Active Substance: SUMATRIPTAN SUCCINATE
     Indication: Migraine
     Dosage: 3 G, ONCE A MONTH
     Route: 058
  3. LOXOPROFEN [Suspect]
     Active Substance: LOXOPROFEN
     Indication: Migraine
     Dosage: 60 MG, TID
     Route: 048
  4. PROPRANOLOL HYDROCHLORIDE TABLET [Concomitant]
     Indication: Migraine
     Dosage: 10 MG, TID

REACTIONS (4)
  - Medication overuse headache [Recovered/Resolved]
  - Vomiting [Unknown]
  - Nausea [Unknown]
  - Overdose [Unknown]
